FAERS Safety Report 20021935 (Version 6)
Quarter: 2022Q2

REPORT INFORMATION
  Report Type: Report from Study
  Country: US (occurrence: US)
  Receive Date: 20211102
  Receipt Date: 20220518
  Transmission Date: 20220720
  Serious: No
  Sender: FDA-Public Use
  Company Number: US-NOVARTISTESTPH-NVSC2021US249513

PATIENT
  Sex: Male
  Weight: 100.69 kg

DRUGS (7)
  1. TREPROSTINIL [Suspect]
     Active Substance: TREPROSTINIL
     Indication: Pulmonary arterial hypertension
     Dosage: CONT (12 NG/KG/MIN)
     Route: 058
     Dates: start: 20210909
  2. TREPROSTINIL [Suspect]
     Active Substance: TREPROSTINIL
     Dosage: CONT (16 NG/KG/MIN)
     Route: 058
  3. TREPROSTINIL [Suspect]
     Active Substance: TREPROSTINIL
     Dosage: CONT (13 NG/KG/MIN)
     Route: 058
  4. TREPROSTINIL [Suspect]
     Active Substance: TREPROSTINIL
     Dosage: CONT (21 NG/KG/MIN)
     Route: 058
  5. VELETRI [Concomitant]
     Active Substance: EPOPROSTENOL
     Indication: Product used for unknown indication
     Dosage: UNK
     Route: 065
  6. ELIQUIS [Concomitant]
     Active Substance: APIXABAN
     Indication: Product used for unknown indication
     Dosage: UNK
     Route: 065
  7. TADALAFIL [Concomitant]
     Active Substance: TADALAFIL
     Indication: Product used for unknown indication
     Dosage: UNK
     Route: 065

REACTIONS (7)
  - Blood pressure increased [Unknown]
  - Urticaria [Unknown]
  - Feeling abnormal [Unknown]
  - Pain in jaw [Unknown]
  - Nausea [Unknown]
  - Fatigue [Unknown]
  - Infusion site pain [Unknown]
